FAERS Safety Report 13397371 (Version 1)
Quarter: 2017Q2

REPORT INFORMATION
  Report Type: Spontaneous
  Country: US (occurrence: US)
  Receive Date: 20170403
  Receipt Date: 20170403
  Transmission Date: 20170830
  Serious: Yes (Death, Hospitalization, Other)
  Sender: FDA-Public Use
  Company Number: US-PFIZER INC-2017134429

PATIENT
  Age: 47 Year
  Sex: Female

DRUGS (5)
  1. AMPICILLIN SODIUM. [Suspect]
     Active Substance: AMPICILLIN SODIUM
     Indication: PROPHYLAXIS
     Dosage: UNK
  2. AMPICILLIN SODIUM. [Suspect]
     Active Substance: AMPICILLIN SODIUM
     Dosage: UNK
     Route: 048
  3. METHICILLIN [Concomitant]
     Active Substance: METHICILLIN
     Indication: ENTEROCOLITIS INFECTIOUS
     Dosage: UNK
  4. KANAMYCIN [Concomitant]
     Active Substance: KANAMYCIN\KANAMYCIN A SULFATE
     Indication: PARAMETRITIS
     Dosage: UNK
  5. LOMOTIL [Concomitant]
     Active Substance: ATROPINE SULFATE\DIPHENOXYLATE HYDROCHLORIDE
     Indication: RETROPERITONEAL HAEMATOMA
     Dosage: UNK

REACTIONS (2)
  - Pelvic infection [Fatal]
  - Pseudomembranous colitis [Fatal]
